FAERS Safety Report 23904350 (Version 1)
Quarter: 2024Q2

REPORT INFORMATION
  Report Type: Spontaneous
  Country: FR (occurrence: FR)
  Receive Date: 20240527
  Receipt Date: 20240527
  Transmission Date: 20240716
  Serious: Yes (Other)
  Sender: FDA-Public Use
  Company Number: FR-AFSSAPS-MP2024000714

PATIENT
  Age: 15 Year
  Sex: Female
  Weight: 53.4 kg

DRUGS (3)
  1. SERTRALINE [Suspect]
     Active Substance: SERTRALINE HYDROCHLORIDE
     Indication: Selective eating disorder
     Dosage: 25 MILLIGRAM, DAILY (D?BUT?E ? 25 MG/J ET AUGMENTATION R?GULI?RE JUSQU^? 75 MG/J AU 29/04)
     Route: 065
     Dates: start: 20240214
  2. CYAMEMAZINE [Concomitant]
     Active Substance: CYAMEMAZINE
     Indication: Selective eating disorder
     Dosage: UNK
     Route: 065
     Dates: start: 202312
  3. OLANZAPINE [Concomitant]
     Active Substance: OLANZAPINE
     Indication: Selective eating disorder
     Dosage: 5 MILLIGRAM, DAILY (5 MG/J, AUGMENT?E JUSQU^? 7.5 MG/J ET 5 MG/J ? PARTIR DE FIN F?VRIER 2024)
     Route: 065
     Dates: start: 202310, end: 20240405

REACTIONS (1)
  - Eyelid myoclonus [Not Recovered/Not Resolved]

NARRATIVE: CASE EVENT DATE: 20240216
